FAERS Safety Report 12512611 (Version 1)
Quarter: 2016Q2

REPORT INFORMATION
  Report Type: Spontaneous
  Country: US (occurrence: None)
  Receive Date: 20160629
  Receipt Date: 20160629
  Transmission Date: 20160815
  Serious: No
  Sender: FDA-Public Use
  Company Number: None

PATIENT
  Age: 50 Year
  Sex: Female

DRUGS (17)
  1. OMEGA 3 [Concomitant]
     Active Substance: OMEGA-3 FATTY ACIDS
  2. COREG CR [Concomitant]
     Active Substance: CARVEDILOL PHOSPHATE
  3. MAGNESIUM [Concomitant]
     Active Substance: MAGNESIUM
  4. CELEBREX [Concomitant]
     Active Substance: CELECOXIB
  5. FLONASE ALGY SPR [Concomitant]
  6. CALCIUM GLUC [Concomitant]
  7. MOBIC [Concomitant]
     Active Substance: MELOXICAM
  8. IBRANCE [Suspect]
     Active Substance: PALBOCICLIB
     Indication: NEOPLASM MALIGNANT
     Dosage: 125MG DAILY FOR 21 DAYS PO
     Route: 048
     Dates: start: 20160509
  9. PRILOSEC [Concomitant]
     Active Substance: OMEPRAZOLE MAGNESIUM
  10. OXYCODONE [Concomitant]
     Active Substance: OXYCODONE
  11. EFFEXOR XR [Concomitant]
     Active Substance: VENLAFAXINE HYDROCHLORIDE
  12. DOCUSATE SOD [Concomitant]
  13. GABAPENTIN. [Concomitant]
     Active Substance: GABAPENTIN
  14. FASLODEX [Concomitant]
     Active Substance: FULVESTRANT
  15. VOLTAREN [Concomitant]
     Active Substance: DICLOFENAC SODIUM
  16. LISINOPRIL. [Concomitant]
     Active Substance: LISINOPRIL
  17. VITAMIN D3 [Concomitant]
     Active Substance: CHOLECALCIFEROL

REACTIONS (3)
  - White blood cell count decreased [None]
  - Bone pain [None]
  - Fatigue [None]

NARRATIVE: CASE EVENT DATE: 20160610
